FAERS Safety Report 13769284 (Version 4)
Quarter: 2017Q4

REPORT INFORMATION
  Report Type: Report from Study
  Country: US (occurrence: US)
  Receive Date: 20170719
  Receipt Date: 20171027
  Transmission Date: 20180320
  Serious: Yes (Death, Hospitalization)
  Sender: FDA-Public Use
  Company Number: US-ACTELION-A-NJ2017-156727

PATIENT
  Age: 60 Year
  Sex: Female
  Weight: 118.37 kg

DRUGS (3)
  1. XARELTO [Concomitant]
     Active Substance: RIVAROXABAN
  2. TRACLEER [Suspect]
     Active Substance: BOSENTAN
     Indication: PULMONARY ARTERIAL HYPERTENSION
     Dosage: 125 MG, BID
     Route: 048
  3. ADEMPAS [Suspect]
     Active Substance: RIOCIGUAT
     Indication: PRODUCT USED FOR UNKNOWN INDICATION
     Dosage: 125 MG, UNK
     Route: 048

REACTIONS (7)
  - Death [Fatal]
  - Weight increased [Unknown]
  - Right ventricular failure [Unknown]
  - Atrial fibrillation [Unknown]
  - Hypotension [Unknown]
  - Renal injury [Unknown]
  - Polyuria [Unknown]

NARRATIVE: CASE EVENT DATE: 201710
